FAERS Safety Report 13961041 (Version 36)
Quarter: 2025Q4

REPORT INFORMATION
  Report Type: Report from Study
  Country: BR (occurrence: BR)
  Receive Date: 20170912
  Receipt Date: 20251215
  Transmission Date: 20260117
  Serious: Yes (Hospitalization, Other)
  Sender: GLAXOSMITHKLINE
  Company Number: BR-GLAXOSMITHKLINE-BR2017GSK035127

PATIENT
  Age: 43 Year
  Sex: Female
  Weight: 50 kg

DRUGS (12)
  1. BELIMUMAB [Suspect]
     Active Substance: BELIMUMAB
     Indication: Systemic lupus erythematosus
     Dosage: 200 MG (5 AMPOULES)
  2. AZATIOPRINA ASOFARMA [Concomitant]
     Indication: Product used for unknown indication
     Dosage: 1 DF, BID
  3. IBUPROFEN [Concomitant]
     Active Substance: IBUPROFEN
     Indication: Product used for unknown indication
     Dosage: UNK
  4. PREDNISONE [Concomitant]
     Active Substance: PREDNISONE
     Indication: Product used for unknown indication
     Dosage: 5 MG
  5. HYDROXYCHLOROQUINE SULFATE [Concomitant]
     Active Substance: HYDROXYCHLOROQUINE SULFATE
     Indication: Product used for unknown indication
     Dosage: UNK
  6. DIMETHICONE [Concomitant]
     Active Substance: DIMETHICONE
     Indication: Product used for unknown indication
     Dosage: UNK
  7. DIMENHYDRINATE\PYRIDOXINE HYDROCHLORIDE [Concomitant]
     Active Substance: DIMENHYDRINATE\PYRIDOXINE HYDROCHLORIDE
     Indication: Product used for unknown indication
     Dosage: UNK
  8. DICLOFENAC [Concomitant]
     Active Substance: DICLOFENAC
     Indication: Product used for unknown indication
     Dosage: UNK
  9. PONSDRIL [Concomitant]
     Indication: Product used for unknown indication
     Dosage: UNK
  10. HYDROXYCHLOROQUINE [Concomitant]
     Active Substance: HYDROXYCHLOROQUINE
     Indication: Product used for unknown indication
     Dosage: 400 MG, QD
  11. DULOXETINE [Concomitant]
     Active Substance: DULOXETINE
     Indication: Product used for unknown indication
     Dosage: 30 MG
  12. AZATHIOPRINE [Concomitant]
     Active Substance: AZATHIOPRINE
     Indication: Product used for unknown indication
     Dosage: 1 DF, BID (50MG)

REACTIONS (51)
  - Illness [Not Recovered/Not Resolved]
  - Rheumatic fever [Unknown]
  - Systemic lupus erythematosus [Recovering/Resolving]
  - Appendicitis [Recovered/Resolved]
  - Cerebrovascular accident [Unknown]
  - Thrombocytopenia [Unknown]
  - Polyarthritis [Unknown]
  - Arthritis [Unknown]
  - Hypersensitivity [Not Recovered/Not Resolved]
  - Pruritus [Unknown]
  - Paraesthesia [Unknown]
  - Feeling hot [Unknown]
  - Myalgia [Unknown]
  - Blood cholesterol increased [Unknown]
  - Purpura [Unknown]
  - Agitation [Unknown]
  - Burning sensation [Unknown]
  - Dermatitis allergic [Unknown]
  - Insomnia [Unknown]
  - Rheumatic disorder [Unknown]
  - Weight fluctuation [Unknown]
  - Headache [Unknown]
  - COVID-19 [Not Recovered/Not Resolved]
  - Blood triglycerides abnormal [Unknown]
  - Asthenia [Not Recovered/Not Resolved]
  - Feeling cold [Unknown]
  - Pain [Unknown]
  - Inflammation [Not Recovered/Not Resolved]
  - Peripheral swelling [Recovering/Resolving]
  - Bursitis [Unknown]
  - Pain in extremity [Recovering/Resolving]
  - Arthralgia [Unknown]
  - Pyrexia [Not Recovered/Not Resolved]
  - Influenza [Unknown]
  - Decreased immune responsiveness [Not Recovered/Not Resolved]
  - Dizziness [Not Recovered/Not Resolved]
  - Erythema [Not Recovered/Not Resolved]
  - Vomiting [Not Recovered/Not Resolved]
  - Anaemia [Unknown]
  - Butterfly rash [Unknown]
  - Photosensitivity reaction [Unknown]
  - Lymphopenia [Unknown]
  - Tenosynovitis [Unknown]
  - Fatigue [Unknown]
  - Loss of personal independence in daily activities [Unknown]
  - Antinuclear antibody positive [Unknown]
  - Niemann-Pick disease [Unknown]
  - Drug interaction [Unknown]
  - Inappropriate schedule of product administration [Unknown]
  - Therapeutic product effect decreased [Unknown]
  - Product dose omission issue [Unknown]

NARRATIVE: CASE EVENT DATE: 20170511
